FAERS Safety Report 24724490 (Version 1)
Quarter: 2024Q4

REPORT INFORMATION
  Report Type: Spontaneous
  Country: JP (occurrence: JP)
  Receive Date: 20241212
  Receipt Date: 20241212
  Transmission Date: 20250115
  Serious: Yes (Death, Hospitalization, Other)
  Sender: BOEHRINGER INGELHEIM
  Company Number: JP-NBI-2024-BI-067696

PATIENT
  Age: 80 Year
  Sex: Male
  Weight: 43.4 kg

DRUGS (5)
  1. OFEV [Suspect]
     Active Substance: NINTEDANIB
     Indication: Idiopathic pulmonary fibrosis
     Dosage: DAILY DOSE: 300 MILLIGRAM(S)
     Route: 048
  2. OFEV [Suspect]
     Active Substance: NINTEDANIB
     Dosage: DAILY DOSE: 200 MILLIGRAM(S)
     Route: 048
  3. SACUBITRIL\VALSARTAN [Concomitant]
     Active Substance: SACUBITRIL\VALSARTAN
     Indication: Product used for unknown indication
     Route: 048
  4. ATORVASTATIN CALCIUM [Concomitant]
     Active Substance: ATORVASTATIN CALCIUM
     Indication: Product used for unknown indication
     Route: 048
  5. AMLODIPINE BESYLATE [Concomitant]
     Active Substance: AMLODIPINE BESYLATE
     Indication: Product used for unknown indication
     Route: 048

REACTIONS (7)
  - Death [Fatal]
  - Post procedural pneumonia [Unknown]
  - Pneumothorax [Recovered/Resolved]
  - Pneumothorax [Unknown]
  - Diarrhoea [Unknown]
  - Abdominal pain [Unknown]
  - Diarrhoea [Unknown]
